FAERS Safety Report 23662691 (Version 1)
Quarter: 2024Q1

REPORT INFORMATION
  Report Type: Spontaneous
  Country: US (occurrence: US)
  Receive Date: 20240322
  Receipt Date: 20240322
  Transmission Date: 20240410
  Serious: Yes (Other)
  Sender: FDA-Public Use
  Company Number: US-PARI RESPIRATORY EQUIPMENT, INC.-2024PAR00025

PATIENT
  Sex: Female
  Weight: 53.061 kg

DRUGS (4)
  1. KITABIS PAK [Suspect]
     Active Substance: TOBRAMYCIN
     Indication: Respiratory tract malformation
     Dosage: INHALE 1 AMPULE (300 MG) VIA NEBULIZER EVERY 12 HOURS FOR 28 DAYS ON AND 28 DAYS OFF, CYCLED
  2. SYMBICORT [Concomitant]
     Active Substance: BUDESONIDE\FORMOTEROL FUMARATE DIHYDRATE
     Dosage: 80-4.5 MCG HFA AER AD
  3. AZITHROMYCIN [Concomitant]
     Active Substance: AZITHROMYCIN
  4. XOPENEX [Concomitant]
     Active Substance: LEVALBUTEROL HYDROCHLORIDE
     Dosage: HFA 45 MCG HFA  AER  AD

REACTIONS (2)
  - Infective pulmonary exacerbation of cystic fibrosis [Unknown]
  - Off label use [Unknown]
